FAERS Safety Report 8901590 (Version 1)
Quarter: 2012Q4

REPORT INFORMATION
  Report Type: Spontaneous
  Country: US (occurrence: None)
  Receive Date: 20121108
  Receipt Date: 20121108
  Transmission Date: 20130627
  Serious: Yes (Other)
  Sender: FDA-Public Use
  Company Number: None

PATIENT
  Age: 37 Year
  Sex: Female
  Weight: 58.97 kg

DRUGS (2)
  1. CIPRO [Suspect]
     Indication: BLADDER INFECTION
     Route: 048
     Dates: start: 20120717, end: 20120719
  2. CIPRO [Suspect]
     Indication: KIDNEY INFECTION
     Route: 048
     Dates: start: 20120717, end: 20120719

REACTIONS (8)
  - Tendon pain [None]
  - Arthralgia [None]
  - Muscular weakness [None]
  - Muscle twitching [None]
  - Decreased appetite [None]
  - Back pain [None]
  - Weight decreased [None]
  - Neuropathy peripheral [None]
